FAERS Safety Report 9377578 (Version 2)
Quarter: 2014Q3

REPORT INFORMATION
  Report Type: Spontaneous
  Country: US (occurrence: US)
  Receive Date: 20130701
  Receipt Date: 20140801
  Transmission Date: 20150326
  Serious: Yes (Hospitalization, Other)
  Sender: FDA-Public Use
  Company Number: US-009507513-1306USA013050

PATIENT
  Sex: Female

DRUGS (3)
  1. CLARITIN [Concomitant]
     Active Substance: LORATADINE
  2. PROAIR HFA [Concomitant]
     Active Substance: ALBUTEROL SULFATE
  3. NUVARING [Suspect]
     Active Substance: ETHINYL ESTRADIOL\ETONOGESTREL
     Indication: CONTRACEPTION
     Dosage: UNK
     Route: 067
     Dates: start: 2004

REACTIONS (5)
  - Pulmonary embolism [Recovering/Resolving]
  - Sinusitis [Unknown]
  - Glucose tolerance impaired [Unknown]
  - Sleep disorder [Unknown]
  - Lipids increased [Unknown]

NARRATIVE: CASE EVENT DATE: 201006
